FAERS Safety Report 16756017 (Version 2)
Quarter: 2019Q3

REPORT INFORMATION
  Report Type: Spontaneous
  Country: US (occurrence: US)
  Receive Date: 20190829
  Receipt Date: 20190917
  Transmission Date: 20191005
  Serious: No
  Sender: FDA-Public Use
  Company Number: US-ETHYPHARM-201901750

PATIENT
  Sex: Male

DRUGS (2)
  1. BUPRENORPHINE. [Suspect]
     Active Substance: BUPRENORPHINE
     Indication: PRODUCT USED FOR UNKNOWN INDICATION
     Dosage: EXP. DATE: 31-MAR-2022
     Route: 065
  2. BUPRENORPHINE. [Suspect]
     Active Substance: BUPRENORPHINE
     Indication: PRODUCT USED FOR UNKNOWN INDICATION
     Dosage: EXP. DATE: 31-MAR-2021
     Route: 065

REACTIONS (6)
  - Product quality issue [Unknown]
  - Decreased appetite [Unknown]
  - Drug diversion [Unknown]
  - Insomnia [Unknown]
  - Drug ineffective [Unknown]
  - Product taste abnormal [Unknown]
